FAERS Safety Report 5740244-X (Version None)
Quarter: 2008Q2

REPORT INFORMATION
  Report Type: 
  Country: None (occurrence: None)
  Receive Date: 20080513
  Receipt Date: 20080501
  Transmission Date: 20081010
  Serious: Yes (Hospitalization)
  Sender: FDA-Public Use
  Company Number: 2008SP008438

PATIENT
  Age: 67 Year
  Sex: Male
  Weight: 55.5 kg

DRUGS (1)
  1. TEMOZOLOMIDE [Suspect]
     Indication: GLIOBLASTOMA MULTIFORME
     Dosage: 130 MG; QD; PO
     Route: 048
     Dates: start: 20080303, end: 20080417

REACTIONS (2)
  - FALL [None]
  - PNEUMONITIS [None]
